FAERS Safety Report 21589839 (Version 1)
Quarter: 2022Q4

REPORT INFORMATION
  Report Type: Spontaneous
  Country: SE (occurrence: SE)
  Receive Date: 20221114
  Receipt Date: 20221114
  Transmission Date: 20230113
  Serious: Yes (Other)
  Sender: FDA-Public Use
  Company Number: SE-JNJFOC-20221049926

PATIENT
  Sex: Male

DRUGS (8)
  1. APREMILAST [Suspect]
     Active Substance: APREMILAST
     Indication: Product used for unknown indication
     Dosage: UNK
     Route: 065
  2. IXEKIZUMAB [Suspect]
     Active Substance: IXEKIZUMAB
     Indication: Psoriasis
     Dosage: UNK
     Route: 065
  3. METHOTREXATE [Suspect]
     Active Substance: METHOTREXATE
     Indication: Arthritis
     Dosage: 25 MILLIGRAM, QWK
     Route: 048
  4. METHOTREXATE [Suspect]
     Active Substance: METHOTREXATE
     Indication: Psoriasis
  5. TREMFYA [Suspect]
     Active Substance: GUSELKUMAB
     Indication: Psoriasis
     Dosage: UNK
     Route: 065
  6. STELARA [Suspect]
     Active Substance: USTEKINUMAB
     Indication: Psoriasis
     Dosage: UNK
     Route: 058
     Dates: start: 2015
  7. STELARA [Suspect]
     Active Substance: USTEKINUMAB
     Indication: Arthritis
  8. UPADACITINIB [Concomitant]
     Active Substance: UPADACITINIB
     Dosage: UNK
     Route: 065
     Dates: start: 2022

REACTIONS (6)
  - Pneumonia [Unknown]
  - Pulmonary embolism [Unknown]
  - Psoriatic arthropathy [Recovering/Resolving]
  - Drug ineffective [Unknown]
  - Weight decreased [Unknown]
  - Pituitary-dependent Cushing^s syndrome [Unknown]

NARRATIVE: CASE EVENT DATE: 20190101
